FAERS Safety Report 10003432 (Version 2)
Quarter: 2014Q1

REPORT INFORMATION
  Report Type: Spontaneous
  Country: US (occurrence: US)
  Receive Date: 20140312
  Receipt Date: 20140312
  Transmission Date: 20141002
  Serious: Yes (Hospitalization)
  Sender: FDA-Public Use
  Company Number: US-GILEAD-2012-0063176

PATIENT
  Sex: Female

DRUGS (14)
  1. LETAIRIS [Suspect]
     Indication: HYPOXIA
     Dosage: 5 MG, UNK
     Route: 048
     Dates: start: 20110817
  2. LETAIRIS [Suspect]
     Indication: PULMONARY HYPERTENSION
  3. ALLOPURINOL [Concomitant]
  4. ASPIRIN [Concomitant]
  5. CARVEDILOL [Concomitant]
  6. CENTRUM SILVER                     /02363801/ [Concomitant]
  7. CITALOPRAM HYDROBROMIDE [Concomitant]
  8. COUMADIN                           /00014802/ [Concomitant]
  9. FISH OIL [Concomitant]
  10. FUROSEMIDE [Concomitant]
  11. KLOR-CON [Concomitant]
  12. LANTUS [Concomitant]
  13. LISINOPRIL [Concomitant]
  14. MUCINEX [Concomitant]

REACTIONS (2)
  - Fluid retention [Recovered/Resolved]
  - Oedema peripheral [Unknown]
